FAERS Safety Report 4391582-7 (Version None)
Quarter: 2004Q3

REPORT INFORMATION
  Report Type: 
  Country: None (occurrence: None)
  Receive Date: 20040702
  Receipt Date: 20040312
  Transmission Date: 20050211
  Serious: Yes (Hospitalization, Disabling)
  Sender: FDA-Public Use
  Company Number: 2004UW03453

PATIENT
  Age: 38 Year
  Sex: Male

DRUGS (12)
  1. CRESTOR [Suspect]
     Indication: DYSLIPIDAEMIA
     Dosage: 10 MG QD PO
     Route: 048
     Dates: start: 20040122, end: 20040123
  2. CRESTOR [Suspect]
     Indication: HYPERLIPIDAEMIA
     Dosage: 10 MG QD PO
     Route: 048
     Dates: start: 20040122, end: 20040123
  3. HYZAAR [Concomitant]
  4. HYTRIN [Concomitant]
  5. SYNTHROID [Concomitant]
  6. CELEXA [Concomitant]
  7. ATENOLOL [Concomitant]
  8. ZOCOR [Concomitant]
  9. ASPIRIN [Concomitant]
  10. WELLBUTRIN [Concomitant]
  11. KLONOPIN [Concomitant]
  12. NEXIUM [Concomitant]

REACTIONS (1)
  - RHABDOMYOLYSIS [None]
